FAERS Safety Report 4306892-9 (Version None)
Quarter: 2004Q1

REPORT INFORMATION
  Report Type: 
  Country: None (occurrence: None)
  Receive Date: 20040227
  Receipt Date: 20040216
  Transmission Date: 20041129
  Serious: Yes (Other)
  Sender: FDA-Public Use
  Company Number: GB-GLAXOSMITHKLINE-B0323842A

PATIENT
  Age: 37 Year
  Sex: Female
  Weight: 70 kg

DRUGS (5)
  1. MALARONE [Suspect]
     Route: 048
     Dates: start: 20030203, end: 20030319
  2. ARILVAX [Concomitant]
     Dosage: .5MG SINGLE DOSE
     Route: 030
     Dates: start: 20030211, end: 20030211
  3. TYPHIM VI [Concomitant]
     Dosage: 25MCG SINGLE DOSE
     Route: 030
     Dates: start: 20030211, end: 20030211
  4. DIFTAVAX [Concomitant]
     Dosage: .5MG SINGLE DOSE
     Route: 030
     Dates: start: 20030211, end: 20030211
  5. AVAXIM [Concomitant]
     Route: 030
     Dates: start: 20030211, end: 20030211

REACTIONS (1)
  - ABORTION SPONTANEOUS [None]
